FAERS Safety Report 4756090-X (Version None)
Quarter: 2005Q3

REPORT INFORMATION
  Report Type: 
  Country: None (occurrence: None)
  Receive Date: 20050826
  Receipt Date: 20041221
  Transmission Date: 20060218
  Serious: Yes (Death, Other)
  Sender: FDA-Public Use
  Company Number: USA-2004-0018121

PATIENT
  Age: 25 Year
  Sex: Male

DRUGS (8)
  1. OXYCODONE HCL [Suspect]
  2. VALIUM [Suspect]
  3. ALCOHOL (ETHANOL) [Suspect]
  4. OXYMORPHONE HYDROCHLORIDE [Suspect]
  5. ACETAMINOPHEN [Suspect]
  6. MARIJUANA (CANNABIS) [Suspect]
  7. PREVACID [Concomitant]
  8. VICODIN [Concomitant]

REACTIONS (4)
  - ACCIDENTAL OVERDOSE [None]
  - COMA [None]
  - MULTIPLE DRUG OVERDOSE [None]
  - POLYSUBSTANCE ABUSE [None]
